FAERS Safety Report 15871376 (Version 1)
Quarter: 2019Q1

REPORT INFORMATION
  Report Type: Spontaneous
  Country: US (occurrence: US)
  Receive Date: 20190126
  Receipt Date: 20190126
  Transmission Date: 20190417
  Serious: Yes (Other)
  Sender: FDA-Public Use
  Company Number: US-TEVA-2019-US-1001136

PATIENT
  Sex: Female

DRUGS (2)
  1. LOSARTAN POTASSIUM TABLETS [Suspect]
     Active Substance: LOSARTAN POTASSIUM
     Indication: HYPERTENSION
  2. LOSARTAN POTASSIUM TABLETS [Suspect]
     Active Substance: LOSARTAN POTASSIUM
     Dates: start: 1988

REACTIONS (4)
  - Abdominal discomfort [Recovered/Resolved]
  - Hiatus hernia [Unknown]
  - Polyp [Not Recovered/Not Resolved]
  - Gastric ulcer [Not Recovered/Not Resolved]
